FAERS Safety Report 5723883-1 (Version None)
Quarter: 2008Q2

REPORT INFORMATION
  Report Type: 
  Country: None (occurrence: None)
  Receive Date: 20080430
  Receipt Date: 20080422
  Transmission Date: 20081010
  Serious: Yes (Hospitalization)
  Sender: FDA-Public Use
  Company Number: HQWYE366111AUG06

PATIENT
  Age: 10 Year
  Sex: Male
  Weight: 43.7 kg

DRUGS (1)
  1. EFFEXOR XR [Suspect]
     Dosage: 150 MG TWICE A DAY (TOTAL INGESTED OVERDOSE AMOUNT OF 600 MG)
     Route: 048
     Dates: start: 20060801, end: 20060801

REACTIONS (10)
  - ABDOMINAL PAIN [None]
  - ACCIDENTAL OVERDOSE [None]
  - CONSTIPATION [None]
  - HALLUCINATIONS, MIXED [None]
  - MYDRIASIS [None]
  - SOMNOLENCE [None]
  - TACHYCARDIA [None]
  - TREMOR [None]
  - URINARY RETENTION [None]
  - WRONG DRUG ADMINISTERED [None]
